FAERS Safety Report 8517773 (Version 5)
Quarter: 2012Q4

REPORT INFORMATION
  Report Type: 
  Country: US (occurrence: US)
  Receive Date: 20120417
  Receipt Date: 20121102
  Transmission Date: 20130627
  Serious: Yes (Other)
  Sender: FDA-Public Use
  Company Number: US-ASTRAZENECA-2011SE19931

PATIENT
  Age: 55 Year
  Sex: Female

DRUGS (1)
  1. NEXIUM [Suspect]
     Route: 048

REACTIONS (26)
  - Oesophageal carcinoma [Unknown]
  - Pain [Unknown]
  - Back pain [Unknown]
  - Throat irritation [Unknown]
  - Aphagia [Unknown]
  - Dysphagia [Unknown]
  - Gastrooesophageal reflux disease [Unknown]
  - Thyroid disorder [Unknown]
  - Cardiac disorder [Unknown]
  - Movement disorder [Unknown]
  - Sleep disorder due to general medical condition, insomnia type [Unknown]
  - Adverse event [Unknown]
  - Abasia [Unknown]
  - Limb discomfort [Unknown]
  - Back disorder [Unknown]
  - Musculoskeletal discomfort [Unknown]
  - Fibromyalgia [Unknown]
  - Migraine [Unknown]
  - Oesophageal spasm [Unknown]
  - Therapeutic response unexpected [Unknown]
  - Malaise [Unknown]
  - Regurgitation [Unknown]
  - Headache [Unknown]
  - Off label use [Unknown]
  - Intentional drug misuse [Unknown]
  - Drug dose omission [Unknown]
